FAERS Safety Report 8257065-9 (Version None)
Quarter: 2012Q2

REPORT INFORMATION
  Report Type: 
  Country: None (occurrence: None)
  Receive Date: 20120403
  Receipt Date: 20120324
  Transmission Date: 20120825
  Serious: Yes (Hospitalization)
  Sender: FDA-Public Use
  Company Number: HU-GLAXOSMITHKLINE-B0791875A

PATIENT
  Age: 64 Year
  Sex: Female

DRUGS (1)
  1. LAMOTRIGINE [Suspect]
     Indication: BIPOLAR DISORDER
     Dosage: 100MG TWICE PER DAY
     Route: 065

REACTIONS (17)
  - LABORATORY TEST ABNORMAL [None]
  - PYREXIA [None]
  - EOSINOPHILIA [None]
  - HYPERSENSITIVITY [None]
  - LYMPHADENITIS [None]
  - SKIN EXFOLIATION [None]
  - CHOLANGITIS [None]
  - LYMPHADENOPATHY [None]
  - PRURITUS [None]
  - LEUKOCYTOSIS [None]
  - C-REACTIVE PROTEIN INCREASED [None]
  - SKIN DISORDER [None]
  - RASH MACULO-PAPULAR [None]
  - DRUG RASH WITH EOSINOPHILIA AND SYSTEMIC SYMPTOMS [None]
  - SWELLING [None]
  - BLOOD LACTATE DEHYDROGENASE INCREASED [None]
  - BLOOD IMMUNOGLOBULIN E INCREASED [None]
